FAERS Safety Report 21085815 (Version 1)
Quarter: 2022Q3

REPORT INFORMATION
  Report Type: Report from Study
  Country: GB (occurrence: GB)
  Receive Date: 20220715
  Receipt Date: 20220715
  Transmission Date: 20221027
  Serious: Yes (Hospitalization, Other)
  Sender: FDA-Public Use
  Company Number: GB-BRISTOL-MYERS SQUIBB COMPANY-BMS-2020-053889

PATIENT
  Age: 54 Year
  Sex: Female
  Weight: 63.5 kg

DRUGS (51)
  1. CARBOPLATIN [Suspect]
     Active Substance: CARBOPLATIN
     Indication: Neoplasm malignant
     Dosage: UNK (ADDITIONAL INFO: 04-FEB-2020)
     Route: 065
  2. ETOPOSIDE [Suspect]
     Active Substance: ETOPOSIDE
     Indication: Neoplasm malignant
     Route: 065
  3. FAMOTIDINE [Suspect]
     Active Substance: FAMOTIDINE
     Indication: Product used for unknown indication
     Dosage: UNIT DOSE : 40 MG, THERAPY DURATION : 1 DAYS
     Route: 065
     Dates: start: 20200212, end: 20200212
  4. FILGRASTIM [Suspect]
     Active Substance: FILGRASTIM
     Indication: White blood cell count decreased
     Dosage: UNK (ADDITIONAL INFO: 04-FEB-2020), THERAPY DURATION : 4  DAYS
     Route: 065
     Dates: start: 20200512, end: 20200515
  5. PACLITAXEL [Suspect]
     Active Substance: PACLITAXEL
     Indication: Neoplasm malignant
     Dosage: 1200 MILLIGRAM, Q3WK, UNIT DOSE : 1200 MG , FREQUENCY : 1 , FREQUENCY TIME : 3 WEEKS
     Route: 042
  6. PACLITAXEL [Suspect]
     Active Substance: PACLITAXEL
     Dosage: 10 MILLIGRAM DAILY; 10 MILLIGRAM (ADDITIONAL INFO: 04-FEB-2020), UNIT DOSE : 10 MG , FREQUENCY : 1 ,
     Route: 065
     Dates: start: 20200325, end: 20200325
  7. ATEZOLIZUMAB [Suspect]
     Active Substance: ATEZOLIZUMAB
     Indication: Neoplasm malignant
     Dosage: 1200 MILLIGRAM, Q3WK, UNIT DOSE : 1200 MG , FREQUENCY : 1 , FREQUENCY TIME : 3 WEEKS, THERAPY DURATI
     Route: 041
     Dates: start: 20200212, end: 20200415
  8. ATEZOLIZUMAB [Suspect]
     Active Substance: ATEZOLIZUMAB
     Dosage: 1200 MILLIGRAM, Q3WK, UNIT DOSE : 1200 MG , FREQUENCY : 1 , FREQUENCY TIME : 3 WEEKS
     Route: 041
     Dates: start: 20200624
  9. ATEZOLIZUMAB [Suspect]
     Active Substance: ATEZOLIZUMAB
     Dosage: 1200 MILLIGRAM, Q3WK, UNIT DOSE : 1200 MG , FREQUENCY : 1 , FREQUENCY TIME : 3 WEEKS
     Route: 041
     Dates: start: 20200304
  10. ATEZOLIZUMAB [Suspect]
     Active Substance: ATEZOLIZUMAB
     Dosage: 1200 MILLIGRAM, Q3WK,UNIT DOSE : 1200 MG , FREQUENCY : 1 , FREQUENCY TIME : 3 WEEKS, THERAPY DURATIO
     Route: 041
     Dates: start: 20200513, end: 20200715
  11. ATEZOLIZUMAB [Suspect]
     Active Substance: ATEZOLIZUMAB
     Dosage: 1200 MILLIGRAM, Q3WK, UNIT DOSE : 1200 MG , FREQUENCY : 1 , FREQUENCY TIME : 3 WEEKS,
     Route: 041
     Dates: start: 20200325
  12. ATEZOLIZUMAB [Suspect]
     Active Substance: ATEZOLIZUMAB
     Dosage: 1200 MILLIGRAM, Q3WK, UNIT DOSE : 1200 MG , FREQUENCY : 1 , FREQUENCY TIME : 3 WEEKS
     Route: 041
     Dates: start: 20200916
  13. ATEZOLIZUMAB [Suspect]
     Active Substance: ATEZOLIZUMAB
     Dosage: 1200 MILLIGRAM, Q3WK, UNIT DOSE : 1200 MG , FREQUENCY : 1 , FREQUENCY TIME : 3 WEEKS
     Route: 041
     Dates: start: 20200415
  14. ATEZOLIZUMAB [Suspect]
     Active Substance: ATEZOLIZUMAB
     Dosage: 1200 MILLIGRAM, Q3WK, UNIT DOSE : 1200 MG , FREQUENCY : 1 , FREQUENCY TIME : 3 WEEKS
     Route: 041
     Dates: start: 20200603
  15. ATEZOLIZUMAB [Suspect]
     Active Substance: ATEZOLIZUMAB
     Dosage: 1200 MILLIGRAM, Q3WK,UNIT DOSE : 1200 MG , FREQUENCY : 1 , FREQUENCY TIME : 3 WEEKS
     Route: 041
     Dates: start: 20200826
  16. ATEZOLIZUMAB [Suspect]
     Active Substance: ATEZOLIZUMAB
     Dosage: 1200 MILLIGRAM Q3WK, UNIT DOSE : 1200 MG , FREQUENCY : 1 , FREQUENCY TIME : 3 WEEKS,
     Route: 041
     Dates: start: 20200312
  17. ATEZOLIZUMAB [Suspect]
     Active Substance: ATEZOLIZUMAB
     Dosage: 1200 MILLIGRAM, Q3WK, UNIT DOSE : 1200 MG , FREQUENCY : 1 , FREQUENCY TIME : 3 WEEKS
     Route: 041
     Dates: start: 20200715
  18. ATEZOLIZUMAB [Suspect]
     Active Substance: ATEZOLIZUMAB
     Dosage: 1200 MILLIGRAM, Q3WK, UNIT DOSE : 1200 MG , FREQUENCY : 1 , FREQUENCY TIME : 3 WEEKS,
     Route: 041
     Dates: start: 20200805
  19. ATEZOLIZUMAB [Suspect]
     Active Substance: ATEZOLIZUMAB
     Dosage: DOSE OF LAST ATEZOLIZUMAB ADMINISTERED PRIOR TO SAE ONSET 15/APR/2020- 1200 MG, UNIT DOSE : 1200 MG
     Route: 041
     Dates: start: 20200204
  20. FILGRASTIM [Suspect]
     Active Substance: FILGRASTIM
     Indication: White blood cell count decreased
     Dosage: UNK (ADDITIONAL INFO: 04-FEB-2020), THERAPY DURATION : 4  DAYS
     Route: 065
     Dates: start: 20200512, end: 20200515
  21. PROLIA [Suspect]
     Active Substance: DENOSUMAB
     Indication: Non-small cell lung cancer
     Dosage: UNK
  22. PROLIA [Suspect]
     Active Substance: DENOSUMAB
     Indication: Bone pain
     Dosage: UNK
     Route: 065
     Dates: start: 20200803
  23. BEVACIZUMAB [Suspect]
     Active Substance: BEVACIZUMAB
     Indication: Neoplasm malignant
     Route: 041
  24. WHOLE BLOOD [Concomitant]
     Active Substance: WHOLE BLOOD
     Indication: Product used for unknown indication
     Dosage: UNK, THERAPY DURATION : 1 DAYS
     Route: 065
     Dates: start: 20200428, end: 20200428
  25. CHLORPHENIRAMINE MALEATE [Concomitant]
     Active Substance: CHLORPHENIRAMINE MALEATE
     Indication: Product used for unknown indication
     Dosage: 10 MILLIGRAM DAILY; UNIT DOSE : 10 MG , FREQUENCY : 1 , FREQUENCY TIME : 1 DAYS,  THERAPY DURATION :
     Route: 065
     Dates: start: 20200325, end: 20200325
  26. CHLORPHENIRAMINE MALEATE [Concomitant]
     Active Substance: CHLORPHENIRAMINE MALEATE
     Dosage: UNK
     Route: 065
     Dates: start: 20200204
  27. CHLORPHENIRAMINE MALEATE [Concomitant]
     Active Substance: CHLORPHENIRAMINE MALEATE
     Dosage: 10 MILLIGRAM DAILY; UNIT DOSE : 10 MG , FREQUENCY : 1 , FREQUENCY TIME : 1 DAYS,  THERAPY DURATION :
     Route: 065
     Dates: start: 20200304, end: 20200304
  28. CYCLIZINE [Concomitant]
     Active Substance: CYCLIZINE
     Indication: Nausea
     Dosage: UNK UNK, AS NECESSARY
     Route: 065
     Dates: start: 20190524
  29. CYCLIZINE [Concomitant]
     Active Substance: CYCLIZINE
     Indication: Nausea
     Dosage: UNK UNK, PRN;
     Dates: start: 20200811
  30. DENOSUMAB [Concomitant]
     Active Substance: DENOSUMAB
     Indication: Bone pain
     Dosage: UNK
     Route: 065
     Dates: start: 20200803
  31. DEXAMETHASONE [Concomitant]
     Active Substance: DEXAMETHASONE
     Indication: Nausea
     Dosage: UNIT DOSE : 20 MG,  THERAPY DURATION :1 DAYS
     Route: 065
     Dates: start: 20200304, end: 20200304
  32. DEXAMETHASONE [Concomitant]
     Active Substance: DEXAMETHASONE
     Indication: Nausea
     Dosage: UNIT DOSE : 20 MG,  THERAPY DURATION :1 DAYS
     Route: 065
     Dates: start: 20200325, end: 20200325
  33. DEXAMETHASONE [Concomitant]
     Active Substance: DEXAMETHASONE
     Dosage: UNIT DOSE : 20 MG,  THERAPY DURATION :1 DAYS
     Route: 065
     Dates: start: 20200212, end: 20200212
  34. DEXAMETHASONE [Concomitant]
     Active Substance: DEXAMETHASONE
     Dosage: 1 MILLIGRAM DAILY; UNK,UNIT DOSE : 1 MG , FREQUENCY : 1 , FREQUENCY TIME : 1 DAYS,  THERAPY DURATION
     Route: 065
     Dates: start: 20200504, end: 20200504
  35. DEXAMETHASONE [Concomitant]
     Active Substance: DEXAMETHASONE
     Dosage: UNIT DOSE : 20 MG THERAPY DURATION :1 DAYS
     Route: 065
     Dates: start: 20200212, end: 20200212
  36. LOPERAMIDE [Concomitant]
     Active Substance: LOPERAMIDE
     Indication: Diarrhoea
     Route: 065
  37. LOPERAMIDE [Concomitant]
     Active Substance: LOPERAMIDE
     Dosage: UNK
     Route: 065
     Dates: start: 20200601
  38. METOCLOPRAMIDE [Concomitant]
     Active Substance: METOCLOPRAMIDE
     Indication: Vomiting
     Dosage: UNK, THERAPY DURATION : 1 DAYS
     Route: 030
     Dates: start: 20200511, end: 20200511
  39. METOCLOPRAMIDE [Concomitant]
     Active Substance: METOCLOPRAMIDE
     Route: 030
     Dates: start: 20200511
  40. METOCLOPRAMIDE [Concomitant]
     Active Substance: METOCLOPRAMIDE
     Route: 030
     Dates: start: 20200511
  41. METOCLOPRAMIDE [Concomitant]
     Active Substance: METOCLOPRAMIDE
     Route: 030
     Dates: start: 20200511
  42. MORPHINE [Concomitant]
     Active Substance: MORPHINE
     Indication: Pain in extremity
     Dosage: UNK
     Route: 065
     Dates: start: 20200829
  43. ONDANSETRON [Concomitant]
     Active Substance: ONDANSETRON
     Indication: Product used for unknown indication
     Dosage: UNIT DOSE : 8 MG  AND THERAPY DURATION :1 DAYS
     Route: 065
     Dates: start: 20200212, end: 20200212
  44. PREDNISOLONE [Concomitant]
     Active Substance: PREDNISOLONE
     Indication: Hepatic failure
     Dosage: 1 DOSAGE FORMS DAILY; UNK, UNIT DOSE : 1 DOSAGE FORMS , FREQUENCY : 1 , FREQUENCY TIME : 1 DAYS,  TH
     Route: 065
     Dates: start: 20200921, end: 20200925
  45. PREDNISOLONE [Concomitant]
     Active Substance: PREDNISOLONE
     Dosage: UNIT DOSE : 1 DOSAGE FORM
     Route: 065
     Dates: start: 20200204
  46. PREDNISOLONE [Concomitant]
     Active Substance: PREDNISOLONE
     Dosage: 50 MILLIGRAM DAILY; UNIT DOSE : 50 MG , FREQUENCY : 1 , FREQUENCY TIME : 1 DAYS,  THERAPY DURATION :
     Route: 065
     Dates: start: 20200325, end: 20200325
  47. PREDNISOLONE [Concomitant]
     Active Substance: PREDNISOLONE
     Dosage: 1 DOSAGE FORMS DAILY; UNIT DOSE : 1 DOSAGE FORMS  , FREQUENCY : 1 , FREQUENCY TIME : 1 DAYS,  THERAP
     Route: 065
     Dates: start: 20200926, end: 20201005
  48. PREDNISOLONE [Concomitant]
     Active Substance: PREDNISOLONE
     Dosage: 1 UNK, QD, FREQUENCY : 1 , FREQUENCY TIME : 1 DAYS,  THERAPY DURATION : 5  DAYS
     Route: 065
     Dates: start: 20200921, end: 20200925
  49. RANITIDINE [Concomitant]
     Active Substance: RANITIDINE
     Indication: Product used for unknown indication
     Dosage: 50 MILLIGRAM, UNIT DOSE : 50 MG  AND THERAPY DURATION :1 DAYS
     Dates: start: 20200304, end: 20200304
  50. RANITIDINE [Concomitant]
     Active Substance: RANITIDINE
     Dosage: UNK UNK, UNK
     Route: 065
  51. RANITIDINE [Concomitant]
     Active Substance: RANITIDINE
     Dosage: 50 MILLIGRAM, UNIT DOSE : 50 MG  AND THERAPY DURATION :1 DAYS
     Route: 065
     Dates: start: 20200325, end: 20200325

REACTIONS (18)
  - Ear pain [Not Recovered/Not Resolved]
  - Decreased appetite [Not Recovered/Not Resolved]
  - Nausea [Not Recovered/Not Resolved]
  - Fatigue [Not Recovered/Not Resolved]
  - Mucosal inflammation [Not Recovered/Not Resolved]
  - Malignant neoplasm progression [Unknown]
  - Diarrhoea [Unknown]
  - Abdominal pain upper [Unknown]
  - Platelet count decreased [Unknown]
  - Hepatic failure [Unknown]
  - Vomiting [Recovering/Resolving]
  - Autoimmune haemolytic anaemia [Recovering/Resolving]
  - Blood magnesium decreased [Recovering/Resolving]
  - White blood cell count decreased [Recovered/Resolved]
  - Anaemia [Recovered/Resolved]
  - Haemoglobin decreased [Recovered/Resolved]
  - Intentional product use issue [Unknown]
  - Weight decreased [Recovered/Resolved]

NARRATIVE: CASE EVENT DATE: 20200213
